FAERS Safety Report 16661482 (Version 1)
Quarter: 2019Q3

REPORT INFORMATION
  Report Type: Spontaneous
  Country: US (occurrence: US)
  Receive Date: 20190802
  Receipt Date: 20190802
  Transmission Date: 20191004
  Serious: Yes (Hospitalization, Other)
  Sender: FDA-Public Use
  Company Number: US-PFIZER INC-2019328831

PATIENT
  Sex: Female

DRUGS (5)
  1. VANCOMYCIN HCL [Suspect]
     Active Substance: VANCOMYCIN HYDROCHLORIDE
     Dosage: UNK
     Route: 042
     Dates: start: 20190425, end: 20190502
  2. VANCOMYCIN HCL [Suspect]
     Active Substance: VANCOMYCIN HYDROCHLORIDE
     Dosage: UNK
     Route: 042
     Dates: start: 20190425, end: 20190502
  3. VANCOMYCIN HCL [Suspect]
     Active Substance: VANCOMYCIN HYDROCHLORIDE
     Dosage: UNK
     Route: 042
     Dates: start: 20190425, end: 20190502
  4. VANCOMYCIN HCL [Suspect]
     Active Substance: VANCOMYCIN HYDROCHLORIDE
     Dosage: UNK
     Route: 042
     Dates: start: 20190425, end: 20190502
  5. VANCOMYCIN HYDROCHLORIDE. [Suspect]
     Active Substance: VANCOMYCIN HYDROCHLORIDE
     Dosage: UNK
     Dates: start: 20190502, end: 20190528

REACTIONS (10)
  - Pyrexia [Unknown]
  - Rectal haemorrhage [Unknown]
  - Swelling [Unknown]
  - Type IV hypersensitivity reaction [Recovering/Resolving]
  - Lymphoproliferative disorder [Recovering/Resolving]
  - Liver injury [Recovering/Resolving]
  - Asthenia [Unknown]
  - Renal injury [Recovering/Resolving]
  - Diarrhoea [Not Recovered/Not Resolved]
  - Rash [Unknown]

NARRATIVE: CASE EVENT DATE: 20190502
